FAERS Safety Report 19046768 (Version 4)
Quarter: 2021Q2

REPORT INFORMATION
  Report Type: Spontaneous
  Country: US (occurrence: US)
  Receive Date: 20210322
  Receipt Date: 20210406
  Transmission Date: 20210717
  Serious: Yes (Other)
  Sender: FDA-Public Use
  Company Number: US-GLAXOSMITHKLINE-US2021AMR063349

PATIENT
  Sex: Female

DRUGS (2)
  1. ZEJULA [Suspect]
     Active Substance: NIRAPARIB
     Indication: OVARIAN CANCER
     Dosage: 300 MG, QD
     Dates: start: 20210309, end: 20210330
  2. XANAX [Concomitant]
     Active Substance: ALPRAZOLAM
     Indication: PRODUCT USED FOR UNKNOWN INDICATION
     Dosage: UNK

REACTIONS (9)
  - Anxiety [Unknown]
  - Ankyloglossia congenital [Recovering/Resolving]
  - Limb discomfort [Recovering/Resolving]
  - Insomnia [Recovering/Resolving]
  - Weight decreased [Unknown]
  - Dizziness [Unknown]
  - Platelet count decreased [Unknown]
  - Tremor [Recovered/Resolved]
  - Constipation [Not Recovered/Not Resolved]
